FAERS Safety Report 7936974-1 (Version None)
Quarter: 2011Q4

REPORT INFORMATION
  Report Type: 
  Country: None (occurrence: None)
  Receive Date: 20111123
  Receipt Date: 20110928
  Transmission Date: 20120403
  Serious: Yes (Death, Life-Threatening, Hospitalization)
  Sender: FDA-Public Use
  Company Number: HU-ROCHE-777244

PATIENT
  Sex: Female
  Weight: 55 kg

DRUGS (7)
  1. HERCEPTIN [Suspect]
     Indication: BREAST CANCER METASTATIC
     Dosage: FORM: INFUSION. LOADING DOSE: 8MG/KG.
     Route: 042
     Dates: start: 20110429, end: 20110519
  2. XELODA [Suspect]
     Indication: BREAST CANCER METASTATIC
     Route: 048
     Dates: start: 20110429, end: 20110511
  3. PERTUZUMAB [Suspect]
     Indication: BREAST CANCER METASTATIC
     Dosage: FORM: INFUSION.LOADING DOSE. TREATMENT WAS PERMANENTLY DISCONTINUED.
     Route: 042
     Dates: start: 20110428, end: 20110519
  4. XELODA [Suspect]
     Route: 048
     Dates: start: 20110512, end: 20110512
  5. XELODA [Suspect]
     Dosage: FREQUENCY: DAILY
     Route: 048
  6. HERCEPTIN [Suspect]
     Dosage: MAINTAINANCE DOSE.
     Route: 042
     Dates: start: 20110520, end: 20110609
  7. PERTUZUMAB [Suspect]
     Dosage: MAINTAINANCE DOSE.
     Route: 042
     Dates: start: 20110519, end: 20110609

REACTIONS (5)
  - DIARRHOEA [None]
  - FATIGUE [None]
  - PANCYTOPENIA [None]
  - GENERAL PHYSICAL HEALTH DETERIORATION [None]
  - CACHEXIA [None]
